FAERS Safety Report 18320053 (Version 1)
Quarter: 2020Q3

REPORT INFORMATION
  Report Type: Spontaneous
  Country: IE (occurrence: IE)
  Receive Date: 20200929
  Receipt Date: 20200929
  Transmission Date: 20201103
  Serious: Yes (Death, Other)
  Sender: FDA-Public Use
  Company Number: IE-ADVANZ PHARMA-202009008867

PATIENT

DRUGS (3)
  1. XELJANZ [Suspect]
     Active Substance: TOFACITINIB CITRATE
     Indication: STILL^S DISEASE
  2. LEFLUNOMIDE (G) [Suspect]
     Active Substance: LEFLUNOMIDE
     Indication: STILL^S DISEASE
  3. PREDNISOLONE. [Suspect]
     Active Substance: PREDNISOLONE
     Indication: STILL^S DISEASE

REACTIONS (2)
  - Pneumonia [Fatal]
  - Staphylococcal sepsis [Fatal]
